FAERS Safety Report 9761822 (Version 1)
Quarter: 2013Q4

REPORT INFORMATION
  Report Type: Spontaneous
  Country: US (occurrence: US)
  Receive Date: 20131216
  Receipt Date: 20131216
  Transmission Date: 20140711
  Serious: No
  Sender: FDA-Public Use
  Company Number: US-BIOGENIDEC-2013BI103915

PATIENT
  Age: 67 Year
  Sex: Female
  Weight: 66 kg

DRUGS (14)
  1. TECFIDERA [Suspect]
     Indication: PRODUCT USED FOR UNKNOWN INDICATION
     Route: 048
  2. TECFIDERA [Suspect]
     Indication: PRODUCT USED FOR UNKNOWN INDICATION
     Route: 048
  3. SYNTHROID [Concomitant]
  4. LISINOPRIL [Concomitant]
  5. ACETAMIN [Concomitant]
  6. PRILOSEC [Concomitant]
  7. AMITRIPTYLINE [Concomitant]
  8. SELENIUM [Concomitant]
  9. COLACE [Concomitant]
  10. COQ 10 [Concomitant]
  11. CALCIUM AND MAGNESIUM [Concomitant]
  12. OMEGA 3 FISH OIL [Concomitant]
  13. RED YEAST [Concomitant]
  14. CRANBERRY [Concomitant]

REACTIONS (4)
  - Chest discomfort [Unknown]
  - Gastrooesophageal reflux disease [Unknown]
  - Palpitations [Unknown]
  - Headache [Unknown]
